FAERS Safety Report 9299451 (Version 1)
Quarter: 2013Q2

REPORT INFORMATION
  Report Type: Report from Study
  Country: JP (occurrence: JP)
  Receive Date: 20130521
  Receipt Date: 20130521
  Transmission Date: 20140414
  Serious: Yes (Life-Threatening, Hospitalization)
  Sender: FDA-Public Use
  Company Number: JP-ROCHE-1226258

PATIENT
  Age: 41 Year
  Sex: Male
  Weight: 63 kg

DRUGS (10)
  1. ALTEPLASE [Suspect]
     Indication: CEREBRAL INFARCTION
     Route: 042
     Dates: start: 20130126
  2. EDARAVONE [Suspect]
     Indication: CEREBRAL INFARCTION
     Route: 041
     Dates: start: 20130126, end: 20130126
  3. EDARAVONE [Suspect]
     Route: 041
     Dates: start: 20130127, end: 20130208
  4. HEPARIN SODIUM [Concomitant]
     Route: 065
     Dates: start: 20130214, end: 20130216
  5. UNASYN-S [Concomitant]
     Route: 065
     Dates: start: 20130130, end: 20130203
  6. FAMOTIDINE [Concomitant]
  7. TAKEPRON [Concomitant]
  8. PROPOFOL [Concomitant]
  9. GLYCEOL [Concomitant]
     Dosage: CONCENTRATED GLYCERIN FRUCTOSE
     Route: 065
     Dates: start: 20130127, end: 20130203
  10. WARFARIN POTASSIUM [Concomitant]
     Route: 048
     Dates: start: 20130212

REACTIONS (3)
  - Brain oedema [Recovering/Resolving]
  - Pneumonia [Recovering/Resolving]
  - Hepatic function abnormal [Recovering/Resolving]
